FAERS Safety Report 4681146-X (Version None)
Quarter: 2005Q2

REPORT INFORMATION
  Report Type: 
  Country: None (occurrence: None)
  Receive Date: 20050602
  Receipt Date: 20050520
  Transmission Date: 20051028
  Serious: Yes (Death)
  Sender: FDA-Public Use
  Company Number: 05-05-0916

PATIENT
  Age: 74 Year
  Sex: Male

DRUGS (8)
  1. ALBUTEROL SULFATE [Suspect]
     Dosage: 100 MCG PRN INHALATION
     Route: 055
  2. BECLOMETHASONE DIPROPIONATE [Suspect]
     Dosage: 200MCG PRN
  3. SPIRIVA [Suspect]
     Dosage: 18 MCG INHALATION
     Route: 055
  4. MONTELUKAST [Suspect]
     Dosage: 10 MG NOCTE
  5. OXYGEN [Suspect]
     Dosage: 2L/MIN - 15HR
  6. QUININE BISULFATE [Suspect]
     Dosage: 300 MG NOCTE
  7. SALMETEROL XINAFOATE [Suspect]
     Dosage: 25.0 MICG/DOS INHALATION
     Route: 055
  8. SERETIDE [Suspect]
     Dosage: 125 2 PUFFS INHALATION
     Route: 055

REACTIONS (2)
  - CHRONIC OBSTRUCTIVE PULMONARY DISEASE [None]
  - DIARRHOEA [None]
